FAERS Safety Report 9058271 (Version 1)
Quarter: 2013Q1

REPORT INFORMATION
  Report Type: Spontaneous
  Country: US (occurrence: None)
  Receive Date: 20130204
  Receipt Date: 20130204
  Transmission Date: 20140127
  Serious: Yes (Other)
  Sender: FDA-Public Use
  Company Number: None

PATIENT
  Sex: Female
  Weight: 58.51 kg

DRUGS (1)
  1. VALCYCLOVIR [Suspect]
     Indication: HERPES SIMPLEX
     Route: 048
     Dates: start: 201011, end: 201204

REACTIONS (4)
  - Dermatitis herpetiformis [None]
  - Coeliac disease [None]
  - Condition aggravated [None]
  - Product substitution issue [None]
